FAERS Safety Report 26090135 (Version 1)
Quarter: 2025Q4

REPORT INFORMATION
  Report Type: Spontaneous
  Country: CN (occurrence: CN)
  Receive Date: 20251126
  Receipt Date: 20251126
  Transmission Date: 20260117
  Serious: Yes (Hospitalization, Disabling, Other)
  Sender: AMGEN
  Company Number: CN-AMGEN-CHNSP2025231292

PATIENT
  Age: 55 Year
  Sex: Female
  Weight: 65 kg

DRUGS (3)
  1. CARFILZOMIB [Suspect]
     Active Substance: CARFILZOMIB
     Indication: Myelodysplastic syndrome
     Dosage: 44 MILLIGRAM, IV DRIP, ON DAY 8 AND DAY 9
     Route: 040
     Dates: start: 20251023, end: 20251024
  2. DEXAMETHASONE [Concomitant]
     Active Substance: DEXAMETHASONE
     Dosage: 20 MILLIGRAM, ON DAY 8 AND DAY 9
     Route: 040
     Dates: start: 20251023
  3. LENALIDOMIDE [Concomitant]
     Active Substance: LENALIDOMIDE
     Dosage: 25 MILLIGRAM, ORALLY ON DAY 8-21
     Route: 048
     Dates: start: 20251023

REACTIONS (2)
  - Myelosuppression [Recovering/Resolving]
  - Granulocytopenia [Recovering/Resolving]

NARRATIVE: CASE EVENT DATE: 20251029
